FAERS Safety Report 9778945 (Version 1)
Quarter: 2013Q4

REPORT INFORMATION
  Report Type: Spontaneous
  Country: US (occurrence: US)
  Receive Date: 20131223
  Receipt Date: 20131223
  Transmission Date: 20140711
  Serious: Yes (Hospitalization)
  Sender: FDA-Public Use
  Company Number: US-INCYTE CORPORATION-2013IN003057

PATIENT
  Age: 65 Year
  Sex: Male

DRUGS (4)
  1. JAKAFI [Suspect]
     Dosage: 25 MG, BID
     Route: 048
     Dates: start: 20121228
  2. JAKAFI [Suspect]
     Dosage: 25 MG, BID
     Route: 048
  3. ATENOLOL [Concomitant]
  4. ASPIRIN [Concomitant]

REACTIONS (2)
  - Hip arthroplasty [Recovering/Resolving]
  - Drug dose omission [Unknown]
